FAERS Safety Report 7872459-9 (Version None)
Quarter: 2011Q4

REPORT INFORMATION
  Report Type: 
  Country: None (occurrence: None)
  Receive Date: 20111030
  Receipt Date: 20110425
  Transmission Date: 20120403
  Serious: No
  Sender: FDA-Public Use
  Company Number: US-AMGEN-USASP2011021680

PATIENT
  Sex: Female

DRUGS (6)
  1. MELOXICAM [Concomitant]
  2. ENBREL [Suspect]
     Indication: POLYARTHRITIS
     Dosage: 50 MG, QWK
     Dates: start: 20110301
  3. FOLIC ACID [Concomitant]
  4. LIPITOR [Concomitant]
  5. METHOTREXATE [Concomitant]
  6. ENALAPRIL [Concomitant]

REACTIONS (1)
  - HYPOAESTHESIA [None]
